FAERS Safety Report 4764033-8 (Version None)
Quarter: 2005Q3

REPORT INFORMATION
  Report Type: 
  Country: None (occurrence: None)
  Receive Date: 20050908
  Receipt Date: 20050310
  Transmission Date: 20060218
  Serious: Yes (Hospitalization)
  Sender: FDA-Public Use
  Company Number: US-MERCK-0503USA02073

PATIENT
  Age: 82 Year
  Sex: Female
  Weight: 80 kg

DRUGS (4)
  1. VIOXX [Suspect]
     Indication: RHEUMATOID ARTHRITIS
     Route: 048
     Dates: start: 19980101
  2. VIOXX [Suspect]
     Route: 048
     Dates: start: 19990101, end: 20020814
  3. VIOXX [Suspect]
     Route: 048
     Dates: start: 19990101, end: 20020814
  4. TYLENOL [Concomitant]
     Route: 065

REACTIONS (7)
  - CORONARY ARTERY OCCLUSION [None]
  - CRACKLES LUNG [None]
  - EMOTIONAL DISTRESS [None]
  - GASTRIC ULCER [None]
  - GASTROINTESTINAL HAEMORRHAGE [None]
  - HYPOMAGNESAEMIA [None]
  - MYOCARDIAL INFARCTION [None]
